FAERS Safety Report 11825223 (Version 8)
Quarter: 2017Q2

REPORT INFORMATION
  Report Type: Report from Study
  Country: CA (occurrence: CA)
  Receive Date: 20151211
  Receipt Date: 20170531
  Transmission Date: 20170829
  Serious: Yes (Life-Threatening, Hospitalization)
  Sender: FDA-Public Use
  Company Number: CA-ROCHE-1652080

PATIENT
  Age: 72 Year
  Sex: Female
  Weight: 92 kg

DRUGS (18)
  1. TRASTUZUMAB [Suspect]
     Active Substance: TRASTUZUMAB
     Dosage: 552 MG, LAST DOSE PRIOR TO SAE 09/JUL/2015?MAINTENACNE DOSE
     Route: 042
  2. COVERSYL [Concomitant]
     Active Substance: PERINDOPRIL
     Route: 065
     Dates: start: 2012
  3. ROSUVASTATIN. [Concomitant]
     Active Substance: ROSUVASTATIN
     Route: 065
     Dates: start: 2012, end: 20150831
  4. PIPERACILLIN/TAZOBACTAM [Concomitant]
     Active Substance: PIPERACILLIN SODIUM\TAZOBACTAM SODIUM
     Route: 065
     Dates: start: 20150717, end: 20150721
  5. DOCETAXEL. [Suspect]
     Active Substance: DOCETAXEL
     Indication: HER-2 POSITIVE BREAST CANCER
     Dosage: LAST DOSE PRIOR TO SAE 09/JUL/2015, 75 MG/M2
     Route: 042
     Dates: start: 20150604, end: 20150709
  6. DECADRON [Concomitant]
     Active Substance: DEXAMETHASONE
     Route: 065
     Dates: start: 20150604, end: 20150611
  7. BENADRYL [Concomitant]
     Active Substance: DIPHENHYDRAMINE HYDROCHLORIDE
     Route: 065
     Dates: start: 20150604, end: 20150604
  8. CLAVULIN [Concomitant]
     Active Substance: AMOXICILLIN\CLAVULANIC ACID
     Route: 065
     Dates: start: 20151028, end: 20151107
  9. TRASTUZUMAB [Suspect]
     Active Substance: TRASTUZUMAB
     Dosage: DATE OF LAST DOSE PRIOR TO SAE: 30/OCT/2015 AT 11.29?ADJUVANT TREATMENT
     Route: 042
  10. PERTUZUMAB [Suspect]
     Active Substance: PERTUZUMAB
     Indication: HER-2 POSITIVE BREAST CANCER
     Dosage: LOADING DOSE
     Route: 042
     Dates: start: 20150604
  11. PERTUZUMAB [Suspect]
     Active Substance: PERTUZUMAB
     Dosage: LAST DOSE PRIOR TO SAE 09/JUL/2015?LAST DOSE PRIOR TO SAE: 30/OCT/2015 - ADJUVANT TREATMENT (840MG)
     Route: 042
  12. MAGNESIUM SULFATE. [Concomitant]
     Active Substance: MAGNESIUM SULFATE
     Route: 065
     Dates: start: 20151218, end: 20151218
  13. KYTRIL [Concomitant]
     Active Substance: GRANISETRON HYDROCHLORIDE
     Route: 065
     Dates: start: 20150604, end: 20150709
  14. PIPERACILLIN/TAZOBACTAM [Concomitant]
     Active Substance: PIPERACILLIN SODIUM\TAZOBACTAM SODIUM
     Route: 065
     Dates: start: 20150717, end: 20150717
  15. MAGNESIUM SULFATE. [Concomitant]
     Active Substance: MAGNESIUM SULFATE
     Route: 065
     Dates: start: 20151121, end: 20151121
  16. TRASTUZUMAB [Suspect]
     Active Substance: TRASTUZUMAB
     Indication: HER-2 POSITIVE BREAST CANCER
     Dosage: LOADING DOSE (736 MG)
     Route: 042
     Dates: start: 20150604
  17. CARBOPLATIN. [Suspect]
     Active Substance: CARBOPLATIN
     Indication: HER-2 POSITIVE BREAST CANCER
     Dosage: LAST DOSE PRIOR TO SAE 09/JUL/2015,
     Route: 042
     Dates: start: 20150604
  18. METFORMIN [Concomitant]
     Active Substance: METFORMIN HYDROCHLORIDE
     Route: 065
     Dates: start: 2009

REACTIONS (4)
  - Cellulitis [Recovered/Resolved]
  - Diarrhoea [Recovered/Resolved]
  - Enterocolitis infectious [Recovered/Resolved]
  - Clostridium difficile colitis [Recovered/Resolved]

NARRATIVE: CASE EVENT DATE: 20150606
